FAERS Safety Report 12903131 (Version 1)
Quarter: 2016Q4

REPORT INFORMATION
  Report Type: Report from Study
  Country: CA (occurrence: CA)
  Receive Date: 20161102
  Receipt Date: 20161102
  Transmission Date: 20170207
  Serious: Yes (Other)
  Sender: FDA-Public Use
  Company Number: CA-CELGENEUS-CAN-2016105091

PATIENT
  Age: 6 Decade
  Sex: Female

DRUGS (4)
  1. REVLIMID [Suspect]
     Active Substance: LENALIDOMIDE
     Indication: AMYLOIDOSIS
     Route: 048
  2. VELCADE [Suspect]
     Active Substance: BORTEZOMIB
     Route: 065
  3. POMALYST [Suspect]
     Active Substance: POMALIDOMIDE
     Indication: AMYLOIDOSIS
     Route: 048
  4. VELCADE [Suspect]
     Active Substance: BORTEZOMIB
     Indication: AMYLOIDOSIS
     Route: 041

REACTIONS (11)
  - Product use issue [Not Recovered/Not Resolved]
  - Loss of consciousness [Not Recovered/Not Resolved]
  - Malaise [Not Recovered/Not Resolved]
  - Oral herpes [Not Recovered/Not Resolved]
  - Off label use [Not Recovered/Not Resolved]
  - Dizziness [Not Recovered/Not Resolved]
  - Impetigo [Not Recovered/Not Resolved]
  - Drug intolerance [Not Recovered/Not Resolved]
  - Vertigo [Not Recovered/Not Resolved]
  - Nausea [Not Recovered/Not Resolved]
  - Fatigue [Not Recovered/Not Resolved]
